FAERS Safety Report 11105710 (Version 1)
Quarter: 2015Q2

REPORT INFORMATION
  Report Type: Spontaneous
  Country: US (occurrence: None)
  Receive Date: 20150508
  Receipt Date: 20150508
  Transmission Date: 20150821
  Serious: Yes (Disabling, Other)
  Sender: FDA-Public Use
  Company Number: None

PATIENT
  Age: 61 Year
  Sex: Female
  Weight: 52.16 kg

DRUGS (18)
  1. DULOXETINE HCL [Suspect]
     Active Substance: DULOXETINE HYDROCHLORIDE
  2. DULOXETINE HCL 30 MG LUPIN [Suspect]
     Active Substance: DULOXETINE HYDROCHLORIDE
  3. PROLIA [Concomitant]
     Active Substance: DENOSUMAB
  4. VAGAFERN [Concomitant]
  5. DULOXETINE HCL [Suspect]
     Active Substance: DULOXETINE HYDROCHLORIDE
  6. DULOXETINE HCL [Suspect]
     Active Substance: DULOXETINE HYDROCHLORIDE
  7. CELEBREX [Concomitant]
     Active Substance: CELECOXIB
  8. PENNSARD [Concomitant]
  9. METAMUCIL-CALCIUM [Concomitant]
  10. MULTI-VITAMIN [Concomitant]
     Active Substance: .ALPHA.-TOCOPHEROL ACETATE, DL-\ASCORBIC ACID\CYANOCOBALAMIN\FLUORIDE ION\FOLIC ACID\NIACIN\PYRIDOXINE\RIBOFLAVIN\THIAMINE\VITAMIN A\VITAMIN D
  11. DULOXETINE HCL [Suspect]
     Active Substance: DULOXETINE HYDROCHLORIDE
     Indication: NECK PAIN
     Dosage: 1 PILL/CAPSULE
     Route: 048
     Dates: start: 20140624, end: 20140719
  12. FLEXERIL [Concomitant]
     Active Substance: CYCLOBENZAPRINE HYDROCHLORIDE
  13. DUKES MOUTHWASH [Concomitant]
  14. CYMBALTA [Concomitant]
     Active Substance: DULOXETINE HYDROCHLORIDE
  15. VIACTIV CALCIUM CHEWS [Concomitant]
     Active Substance: CALCIUM\VITAMIN D\VITAMIN K5
  16. DULOXETINE HCL [Suspect]
     Active Substance: DULOXETINE HYDROCHLORIDE
     Indication: ARTHRITIS
     Dosage: 1 PILL/CAPSULE
     Route: 048
     Dates: start: 20140624, end: 20140719
  17. PROTONIX [Concomitant]
     Active Substance: PANTOPRAZOLE SODIUM
  18. WELLBUTRIN SR [Concomitant]
     Active Substance: BUPROPION HYDROCHLORIDE

REACTIONS (10)
  - Neck pain [None]
  - Quality of life decreased [None]
  - Musculoskeletal stiffness [None]
  - Dizziness [None]
  - Stomatitis [None]
  - Inadequate analgesia [None]
  - General physical health deterioration [None]
  - Product quality issue [None]
  - Product substitution issue [None]
  - Renal impairment [None]

NARRATIVE: CASE EVENT DATE: 20140719
